FAERS Safety Report 16161101 (Version 1)
Quarter: 2019Q2

REPORT INFORMATION
  Report Type: Spontaneous
  Country: CH (occurrence: CH)
  Receive Date: 20190405
  Receipt Date: 20190405
  Transmission Date: 20190711
  Serious: Yes (Other)
  Sender: FDA-Public Use
  Company Number: CH-ROCHE-2291842

PATIENT
  Sex: Male

DRUGS (3)
  1. GAZYVARO [Suspect]
     Active Substance: OBINUTUZUMAB
     Indication: CHRONIC LYMPHOCYTIC LEUKAEMIA
     Route: 042
     Dates: start: 20161212, end: 201709
  2. GAZYVARO [Suspect]
     Active Substance: OBINUTUZUMAB
     Route: 042
     Dates: start: 20180718
  3. CHLORAMBUCIL [Concomitant]
     Active Substance: CHLORAMBUCIL
     Indication: CHRONIC LYMPHOCYTIC LEUKAEMIA

REACTIONS (1)
  - Chronic lymphocytic leukaemia [Recovered/Resolved]

NARRATIVE: CASE EVENT DATE: 2018
